FAERS Safety Report 9746192 (Version 2)
Quarter: 2014Q1

REPORT INFORMATION
  Report Type: Spontaneous
  Country: US (occurrence: US)
  Receive Date: 20131211
  Receipt Date: 20140225
  Transmission Date: 20141002
  Serious: No
  Sender: FDA-Public Use
  Company Number: US-B.I. PHARMACEUTICALS,INC./RIDGEFIELD-2013-BI-39301BP

PATIENT
  Age: 74 Year
  Sex: Female
  Weight: 59 kg

DRUGS (3)
  1. SPIRIVA [Suspect]
     Indication: EMPHYSEMA
     Dosage: 18 MCG
     Route: 055
     Dates: start: 201309
  2. SYMBICORT [Concomitant]
     Indication: EMPHYSEMA
     Dosage: FORMULATION: (INHALATION AEROSOL)
     Route: 065
  3. OXYGEN [Concomitant]
     Indication: EMPHYSEMA
     Dosage: DOSE: 2 LITERS PER MINUTE
     Route: 065

REACTIONS (3)
  - Aphonia [Not Recovered/Not Resolved]
  - Product quality issue [Recovered/Resolved]
  - Product quality issue [Recovered/Resolved]
